FAERS Safety Report 10200982 (Version 2)
Quarter: 2014Q2

REPORT INFORMATION
  Report Type: Spontaneous
  Country: IT (occurrence: IT)
  Receive Date: 20140528
  Receipt Date: 20140626
  Transmission Date: 20141212
  Serious: Yes (Hospitalization)
  Sender: FDA-Public Use
  Company Number: PHHY2014IT062647

PATIENT
  Age: 76 Year
  Sex: Male

DRUGS (6)
  1. ACLASTA [Suspect]
     Indication: OSTEITIS DEFORMANS
     Dosage: 5 MG, UNK
     Route: 042
     Dates: start: 20140428
  2. CARDIO ASPIRIN [Concomitant]
     Dosage: 100 MG, UNK
     Route: 048
  3. ANTACAL [Concomitant]
     Indication: ESSENTIAL HYPERTENSION
     Dosage: 2.5 MG, UNK
     Route: 048
  4. LASIX [Concomitant]
     Indication: ESSENTIAL HYPERTENSION
     Dosage: 12.5 MG, UNK
     Route: 048
  5. SIVASTIN [Concomitant]
     Indication: HYPERCHOLESTEROLAEMIA
     Dosage: 20 MG, UNK
     Route: 048
  6. LOSAZID [Concomitant]
     Indication: ESSENTIAL HYPERTENSION
     Dosage: UNK UKN, UNK
     Route: 048

REACTIONS (2)
  - Ocular myasthenia [Recovering/Resolving]
  - Eyelid ptosis [Recovering/Resolving]
